FAERS Safety Report 8520313-1 (Version None)
Quarter: 2012Q3

REPORT INFORMATION
  Report Type: 
  Country: None (occurrence: None)
  Receive Date: 20120713
  Receipt Date: 20120713
  Transmission Date: 20120928
  Serious: Yes (Other)
  Sender: FDA-Public Use
  Company Number: None

PATIENT
  Age: 45 Month
  Sex: Male
  Weight: 97.5 kg

DRUGS (10)
  1. DOCUSATE [Concomitant]
  2. METFORMIN HYDROCHLORIDE [Concomitant]
  3. CLOZAPINE [Suspect]
     Indication: SCHIZOAFFECTIVE DISORDER
     Dosage: 250 MG PO
     Route: 048
     Dates: start: 20120317, end: 20120529
  4. GEMFIBROZIL [Concomitant]
  5. LITHIUM CARBONATE [Concomitant]
  6. SERTRALINE HYDROCHLORIDE [Concomitant]
  7. LISINOPRIL [Concomitant]
  8. INSULIN [Concomitant]
  9. ASPIRIN [Concomitant]
  10. GLIPIZIDE [Concomitant]

REACTIONS (1)
  - NEUTROPHIL COUNT DECREASED [None]
